FAERS Safety Report 8622507-3 (Version None)
Quarter: 2012Q3

REPORT INFORMATION
  Report Type: 
  Country: None (occurrence: None)
  Receive Date: 20120827
  Receipt Date: 20120821
  Transmission Date: 20120928
  Serious: No
  Sender: FDA-Public Use
  Company Number: US-PFIZER INC-2012174935

PATIENT
  Age: 68 Year
  Sex: Male

DRUGS (2)
  1. INLYTA [Suspect]
  2. INLYTA [Suspect]
     Indication: RENAL CANCER
     Dosage: 5 MG, 2X/DAY
     Route: 048
     Dates: start: 20120401

REACTIONS (11)
  - INCREASED TENDENCY TO BRUISE [None]
  - CONSTIPATION [None]
  - SKIN IRRITATION [None]
  - ASTHENIA [None]
  - WEIGHT DECREASED [None]
  - HEADACHE [None]
  - BLOOD GLUCOSE FLUCTUATION [None]
  - DYSGEUSIA [None]
  - FATIGUE [None]
  - DECREASED APPETITE [None]
  - DYSPHONIA [None]
